FAERS Safety Report 16346198 (Version 3)
Quarter: 2019Q2

REPORT INFORMATION
  Report Type: Spontaneous
  Country: DE (occurrence: DE)
  Receive Date: 20190523
  Receipt Date: 20190613
  Transmission Date: 20190711
  Serious: Yes (Hospitalization, Other)
  Sender: FDA-Public Use
  Company Number: DE-AUROBINDO-AUR-APL-2019-028550

PATIENT

DRUGS (3)
  1. JANUVIA [Concomitant]
     Active Substance: SITAGLIPTIN PHOSPHATE
     Indication: TYPE 2 DIABETES MELLITUS
     Dosage: UNK
     Route: 065
  2. METFORMIN [Suspect]
     Active Substance: METFORMIN HYDROCHLORIDE
     Indication: TYPE 2 DIABETES MELLITUS
     Dosage: UNK
     Route: 065
  3. LEVEMIR [Concomitant]
     Active Substance: INSULIN DETEMIR
     Indication: TYPE 2 DIABETES MELLITUS
     Dosage: UNK
     Route: 065

REACTIONS (24)
  - Bradycardia [Unknown]
  - Shock [Recovering/Resolving]
  - Drug level increased [Recovering/Resolving]
  - Electrolyte imbalance [Recovering/Resolving]
  - Blood osmolarity increased [Recovering/Resolving]
  - Toxicity to various agents [Unknown]
  - Vomiting [Recovering/Resolving]
  - Loss of consciousness [Recovering/Resolving]
  - Anion gap increased [Recovering/Resolving]
  - Nodal arrhythmia [Recovering/Resolving]
  - Hypoxia [Recovering/Resolving]
  - Dyspnoea [Recovering/Resolving]
  - Acute kidney injury [Recovering/Resolving]
  - Metabolic acidosis [Recovering/Resolving]
  - Therapeutic response decreased [Unknown]
  - Cardiac arrest [Recovering/Resolving]
  - Dehydration [Recovering/Resolving]
  - Lactic acidosis [Recovering/Resolving]
  - Hypoglycaemia [Recovering/Resolving]
  - Hypothermia [Recovering/Resolving]
  - Cardiac failure [Recovering/Resolving]
  - Hypoperfusion [Recovering/Resolving]
  - Nausea [Recovering/Resolving]
  - Poor quality sleep [Recovering/Resolving]
